FAERS Safety Report 15800731 (Version 1)
Quarter: 2019Q1

REPORT INFORMATION
  Report Type: Spontaneous
  Country: US (occurrence: US)
  Receive Date: 20190109
  Receipt Date: 20190109
  Transmission Date: 20190417
  Serious: Yes (Other)
  Sender: FDA-Public Use
  Company Number: US-ROCHE-2241737

PATIENT
  Sex: Female

DRUGS (4)
  1. HERCEPTIN [Suspect]
     Active Substance: TRASTUZUMAB
     Indication: BREAST CANCER
     Dosage: LOADING DOSE
     Route: 065
     Dates: start: 2018
  2. HERCEPTIN [Suspect]
     Active Substance: TRASTUZUMAB
     Dosage: FOR 6 CYCLES
     Route: 065
  3. PERJETA [Suspect]
     Active Substance: PERTUZUMAB
     Indication: BREAST CANCER
     Dosage: LOADING DOSE
     Route: 065
     Dates: start: 2018
  4. PERJETA [Suspect]
     Active Substance: PERTUZUMAB
     Dosage: FOR 6 CYCLES
     Route: 065

REACTIONS (1)
  - Gastrointestinal ulcer perforation [Recovered/Resolved]

NARRATIVE: CASE EVENT DATE: 2018
